FAERS Safety Report 25488488 (Version 1)
Quarter: 2025Q2

REPORT INFORMATION
  Report Type: Spontaneous
  Country: CN (occurrence: CN)
  Receive Date: 20250627
  Receipt Date: 20250627
  Transmission Date: 20250717
  Serious: Yes (Death, Hospitalization, Other)
  Sender: SANOFI AVENTIS
  Company Number: CN-SANOFI-02564978

PATIENT
  Sex: Female

DRUGS (1)
  1. TOUJEO [Suspect]
     Active Substance: INSULIN GLARGINE
     Route: 065

REACTIONS (4)
  - Cardiac failure [Fatal]
  - Diabetic complication [Fatal]
  - Hospitalisation [Unknown]
  - Renal disorder [Unknown]

NARRATIVE: CASE EVENT DATE: 20250301
